FAERS Safety Report 9790597 (Version 2)
Quarter: 2013Q4

REPORT INFORMATION
  Report Type: Report from Study
  Country: FR (occurrence: FR)
  Receive Date: 20131231
  Receipt Date: 20131231
  Transmission Date: 20140711
  Serious: Yes (Hospitalization)
  Sender: FDA-Public Use
  Company Number: FR-GLAXOSMITHKLINE-B0720896B

PATIENT
  Age: 83 Year
  Sex: Female
  Weight: 58 kg

DRUGS (5)
  1. OFATUMUMAB [Suspect]
     Indication: B-CELL LYMPHOMA
     Dosage: 1000MG PER DAY
     Dates: start: 20110413, end: 20110727
  2. CHOP [Suspect]
     Indication: LYMPHOMA
     Dates: start: 20110413
  3. COVERSYL [Concomitant]
     Indication: HYPERTENSION
     Dates: start: 20110413
  4. PRAVASTATINE [Concomitant]
     Indication: HYPERCHOLESTEROLAEMIA
     Dates: start: 2005
  5. INEXIUM [Concomitant]
     Indication: PROPHYLAXIS
     Dates: start: 20110406

REACTIONS (1)
  - Chest pain [Recovered/Resolved]
